FAERS Safety Report 19466938 (Version 2)
Quarter: 2021Q4

REPORT INFORMATION
  Report Type: Report from Study
  Country: ZA (occurrence: ZA)
  Receive Date: 20210628
  Receipt Date: 20211025
  Transmission Date: 20220303
  Serious: Yes (Death, Other)
  Sender: FDA-Public Use
  Company Number: ZA-NOVOPROD-823055

PATIENT
  Sex: Male

DRUGS (7)
  1. OMEPRAZOLE [Concomitant]
     Active Substance: OMEPRAZOLE
     Indication: Ulcer
     Dosage: 20 MG
     Route: 048
     Dates: end: 202104
  2. INDAPAMIDE [Concomitant]
     Active Substance: INDAPAMIDE
     Indication: Diuretic therapy
     Dosage: 2.5 MG
     Route: 048
     Dates: end: 202104
  3. LONITEN [Concomitant]
     Active Substance: MINOXIDIL
     Indication: Hypertension
     Dosage: 5 MG
     Route: 048
     Dates: end: 202104
  4. HYDRALAZINE HYDROCHLORIDE [Concomitant]
     Active Substance: HYDRALAZINE HYDROCHLORIDE
     Indication: Hypertension
     Dosage: 50 MG
     Route: 048
     Dates: end: 202104
  5. TWYNSTA [Concomitant]
     Active Substance: AMLODIPINE BESYLATE\TELMISARTAN
     Indication: Hypertension
     Dosage: 80/10 MG
     Route: 048
     Dates: end: 202104
  6. DOXAZOSIN MESYLATE [Concomitant]
     Active Substance: DOXAZOSIN MESYLATE
     Indication: Prostatic disorder
     Dosage: 4 MG
     Route: 048
     Dates: end: 202104
  7. INSULIN ASPART [Suspect]
     Active Substance: INSULIN ASPART
     Indication: Diabetes mellitus
     Dosage: UNK
     Route: 058
     Dates: end: 202104

REACTIONS (3)
  - Thrombosis [Fatal]
  - Renal failure [Fatal]
  - Cerebrovascular accident [Fatal]
